FAERS Safety Report 8997958 (Version 1)
Quarter: 2013Q1

REPORT INFORMATION
  Report Type: Report from Study
  Country: US (occurrence: US)
  Receive Date: 20130104
  Receipt Date: 20130104
  Transmission Date: 20140127
  Serious: Yes (Other)
  Sender: FDA-Public Use
  Company Number: US-ROCHE-1073898

PATIENT
  Age: 62 Year
  Sex: Female
  Weight: 84.9 kg

DRUGS (7)
  1. TRASTUZUMAB [Suspect]
     Indication: BREAST CANCER METASTATIC
     Route: 042
     Dates: start: 2007
  2. TRASTUZUMAB [Suspect]
     Route: 042
     Dates: start: 2011
  3. CAPECITABINE [Suspect]
     Indication: BREAST CANCER METASTATIC
     Route: 048
     Dates: start: 2007, end: 2007
  4. COMPAZINE [Concomitant]
     Indication: NAUSEA
     Route: 048
  5. CORTISONE [Concomitant]
     Indication: OSTEOPOROSIS
     Dosage: SITE: TO LEFT KNEE
     Route: 065
  6. TAXOL [Concomitant]
     Indication: BREAST CANCER
     Route: 042
     Dates: start: 2007, end: 2007
  7. PROCRIT [Concomitant]
     Indication: RED BLOOD CELL COUNT DECREASED
     Route: 058

REACTIONS (14)
  - Pyrexia [Recovered/Resolved]
  - Chills [Recovered/Resolved]
  - Sinus congestion [Not Recovered/Not Resolved]
  - Sinus headache [Not Recovered/Not Resolved]
  - Headache [Unknown]
  - Nasal congestion [Not Recovered/Not Resolved]
  - Respiratory disorder [Not Recovered/Not Resolved]
  - Arthritis [Not Recovered/Not Resolved]
  - Local swelling [Not Recovered/Not Resolved]
  - Red blood cell count decreased [Unknown]
  - Transferrin saturation decreased [Unknown]
  - Arthralgia [Not Recovered/Not Resolved]
  - Osteoporosis [Not Recovered/Not Resolved]
  - Catheter site haemorrhage [Unknown]
